FAERS Safety Report 18979956 (Version 1)
Quarter: 2021Q1

REPORT INFORMATION
  Report Type: Spontaneous
  Country: GB (occurrence: GB)
  Receive Date: 20210308
  Receipt Date: 20210308
  Transmission Date: 20210420
  Serious: Yes (Hospitalization, Other)
  Sender: FDA-Public Use
  Company Number: GB-ACCORD-218761

PATIENT
  Age: 63 Year
  Sex: Female

DRUGS (15)
  1. KLIOFEM [Concomitant]
     Active Substance: ESTRADIOL\NORETHINDRONE ACETATE
  2. ZOLPIDEM [Concomitant]
     Active Substance: ZOLPIDEM TARTRATE
     Dosage: AT NIGHT.
  3. GLYCERYL TRINITRATE [Concomitant]
     Active Substance: NITROGLYCERIN
     Dosage: 1?2 SPRAYS WHEN REQUIRED
     Route: 060
  4. DIAZEPAM. [Concomitant]
     Active Substance: DIAZEPAM
  5. ASPIRIN. [Concomitant]
     Active Substance: ASPIRIN
  6. RAMIPRIL. [Concomitant]
     Active Substance: RAMIPRIL
  7. FUROSEMIDE. [Suspect]
     Active Substance: FUROSEMIDE
     Indication: CARDIAC FAILURE CHRONIC
     Dosage: 20MG DAILY
     Route: 048
  8. ATORVASTATIN [Concomitant]
     Active Substance: ATORVASTATIN
     Dosage: AT NIGHT.
  9. ESOMEPRAZOLE/ESOMEPRAZOLE MAGNESIUM/ESOMEPRAZOLE SODIUM [Suspect]
     Active Substance: ESOMEPRAZOLE
     Indication: PRODUCT USED FOR UNKNOWN INDICATION
     Route: 048
  10. EPLERENONE. [Concomitant]
     Active Substance: EPLERENONE
  11. AMITRIPTYLINE [Concomitant]
     Active Substance: AMITRIPTYLINE
     Dosage: AT NIGHT.
  12. BISOPROLOL [Concomitant]
     Active Substance: BISOPROLOL
  13. CLOPIDOGREL [Concomitant]
     Active Substance: CLOPIDOGREL BISULFATE
  14. PRUCALOPRIDE [Concomitant]
     Active Substance: PRUCALOPRIDE
  15. DIAZEPAM. [Concomitant]
     Active Substance: DIAZEPAM
     Dosage: AT NIGHT ONLY IF REQUIRED.

REACTIONS (9)
  - Hypomagnesaemia [Recovered/Resolved]
  - Vision blurred [Unknown]
  - Hypocalcaemia [Unknown]
  - Decreased appetite [Unknown]
  - Confusional state [Unknown]
  - Headache [Unknown]
  - Vitamin D deficiency [Unknown]
  - Paraesthesia [Unknown]
  - Muscle spasms [Unknown]
